FAERS Safety Report 8387882 (Version 3)
Quarter: 2012Q4

REPORT INFORMATION
  Report Type: Spontaneous
  Country: CA (occurrence: None)
  Receive Date: 20120118
  Receipt Date: 20121010
  Transmission Date: 20130627
  Serious: Yes (Hospitalization, Other)
  Sender: FDA-Public Use
  Company Number: 216384

PATIENT
  Age: 89 Year
  Sex: Female
  Weight: 64 kg

DRUGS (8)
  1. INNOHEP (TINZAPARIN SODIUM) (10000 IU/ML, INJECTION) [Suspect]
     Indication: DVT PROPHYLAXIS
     Dosage: 5100 IU (5100 IU,1 IN 1 D),SUBCUTANEOUS
     Route: 058
     Dates: start: 20110410, end: 20110531
  2. ACETAMINOPHEN [Concomitant]
  3. ALENDRONATE (ALENDRONATE SODIUM) (TABLET) [Concomitant]
  4. ASPIRIN [Concomitant]
  5. ESOMEPRAZOLE MAGNESIUM [Concomitant]
  6. FERROUS FUMARATE [Concomitant]
  7. LEVOTHYROXINE SODIUM [Concomitant]
  8. MIRTAZAPINE (MIRTAZAPINE) (TABLET) [Concomitant]

REACTIONS (3)
  - Deep vein thrombosis [None]
  - Thrombocytopenia [None]
  - Incorrect drug administration duration [None]
